FAERS Safety Report 6166669-9 (Version None)
Quarter: 2009Q2

REPORT INFORMATION
  Report Type: 
  Country: None (occurrence: None)
  Receive Date: 20090423
  Receipt Date: 20090423
  Transmission Date: 20091009
  Serious: No
  Sender: FDA-Public Use
  Company Number: None

PATIENT
  Age: 57 Year
  Sex: Female
  Weight: 57.1532 kg

DRUGS (1)
  1. CITALOPRAM HYDROBROMIDE [Suspect]
     Indication: DEPRESSION
     Dosage: 20 MG 1 PO
     Route: 048
     Dates: start: 20090418, end: 20090418

REACTIONS (7)
  - AGITATION [None]
  - DIARRHOEA [None]
  - DRY MOUTH [None]
  - MOVEMENT DISORDER [None]
  - MUSCLE SPASMS [None]
  - THINKING ABNORMAL [None]
  - TREMOR [None]
